FAERS Safety Report 8443011-1 (Version None)
Quarter: 2012Q2

REPORT INFORMATION
  Report Type: 
  Country: None (occurrence: None)
  Receive Date: 20120615
  Receipt Date: 20120604
  Transmission Date: 20120825
  Serious: Yes (Other)
  Sender: FDA-Public Use
  Company Number: IT-CELGENEUS-083-20785-12032819

PATIENT
  Sex: Female

DRUGS (7)
  1. VELCADE [Suspect]
     Dosage: 1.12 MILLIGRAM
     Route: 041
     Dates: end: 20101113
  2. PREDNISONE [Suspect]
     Indication: MULTIPLE MYELOMA
     Dosage: 96 MILLIGRAM
     Route: 048
     Dates: start: 20071026, end: 20080815
  3. MELPHALAN HYDROCHLORIDE [Suspect]
     Dates: end: 20080902
  4. PREDNISONE [Suspect]
     Route: 065
     Dates: end: 20080902
  5. VELCADE [Suspect]
     Indication: MULTIPLE MYELOMA
     Dosage: 2.08 MILLIGRAM
     Route: 041
     Dates: start: 20071026
  6. THALIDOMIDE [Suspect]
     Indication: MULTIPLE MYELOMA
     Dosage: 50 MILLIGRAM
     Route: 048
     Dates: start: 20071026, end: 20090721
  7. MELPHALAN HYDROCHLORIDE [Suspect]
     Indication: MULTIPLE MYELOMA
     Dosage: 14.4 MILLIGRAM
     Route: 048
     Dates: start: 20071026, end: 20080815

REACTIONS (1)
  - MASTOCYTOSIS [None]
